FAERS Safety Report 8140616-2 (Version None)
Quarter: 2012Q1

REPORT INFORMATION
  Report Type: 
  Country: None (occurrence: None)
  Receive Date: 20120216
  Receipt Date: 20120213
  Transmission Date: 20120608
  Serious: Yes (Death)
  Sender: FDA-Public Use
  Company Number: US-CELGENEUS-163-21880-12021393

PATIENT
  Sex: Female

DRUGS (12)
  1. REVLIMID [Suspect]
     Indication: MULTIPLE MYELOMA
     Dosage: 25 MILLIGRAM
     Route: 048
     Dates: start: 20101230
  2. MULTI-VITAMINS [Concomitant]
     Route: 048
  3. ZOMETA [Concomitant]
     Dosage: 4MG/5ML
     Route: 065
  4. LEVOTHYROXINE SODIUM [Concomitant]
     Dosage: 100 MICROGRAM
     Route: 048
  5. VELCADE [Concomitant]
     Dosage: 3.5 MILLIGRAM
     Route: 065
  6. CALCIUM PLUS VITAMIN D [Concomitant]
     Route: 048
  7. METOCLOPRAMIDE [Concomitant]
     Dosage: 100 MILLIGRAM
     Route: 048
  8. PRAVASTATIN [Concomitant]
     Dosage: 40 MILLIGRAM
     Route: 048
  9. REVLIMID [Suspect]
     Dosage: 10 MILLIGRAM
     Route: 048
     Dates: start: 20111001
  10. FUROSEMIDE [Concomitant]
     Dosage: 20 MILLIGRAM
     Route: 048
  11. WARFARIN SODIUM [Concomitant]
     Dosage: 2.5 MILLIGRAM
     Route: 048
  12. PACERONE [Concomitant]
     Dosage: 100 MILLIGRAM
     Route: 048

REACTIONS (1)
  - DEATH [None]
